FAERS Safety Report 8572720-9 (Version None)
Quarter: 2012Q3

REPORT INFORMATION
  Report Type: 
  Country: None (occurrence: None)
  Receive Date: 20120806
  Receipt Date: 20120801
  Transmission Date: 20120928
  Serious: Yes (Hospitalization)
  Sender: FDA-Public Use
  Company Number: US-PFIZER INC-2012188144

PATIENT

DRUGS (1)
  1. CELEBREX [Suspect]
     Dosage: 2 DOSE

REACTIONS (2)
  - TETANY [None]
  - DYSTONIA [None]
